FAERS Safety Report 12266722 (Version 1)
Quarter: 2016Q2

REPORT INFORMATION
  Report Type: Spontaneous
  Country: CH (occurrence: CH)
  Receive Date: 20160414
  Receipt Date: 20160414
  Transmission Date: 20160815
  Serious: Yes (Hospitalization)
  Sender: FDA-Public Use
  Company Number: CH-SUN PHARMACEUTICAL INDUSTRIES LTD-2016R1-114446

PATIENT
  Age: 83 Year
  Sex: Female

DRUGS (1)
  1. DIGOXIN. [Suspect]
     Active Substance: DIGOXIN
     Indication: DYSPNOEA
     Dosage: 0.25 MG, DAILY (5 DAYS A WEEK)
     Route: 065

REACTIONS (5)
  - Tachycardia [Recovered/Resolved]
  - Atrioventricular block [Recovered/Resolved]
  - Adams-Stokes syndrome [Unknown]
  - Ventricular tachycardia [Recovered/Resolved]
  - Toxicity to various agents [Recovered/Resolved]
